FAERS Safety Report 25645124 (Version 1)
Quarter: 2025Q3

REPORT INFORMATION
  Report Type: Report from Study
  Country: PH (occurrence: PH)
  Receive Date: 20250805
  Receipt Date: 20250805
  Transmission Date: 20251021
  Serious: Yes (Hospitalization, Other)
  Sender: OTSUKA
  Company Number: PH-MMM-Otsuka-1EKDYA8Q

PATIENT
  Sex: Male

DRUGS (2)
  1. TOLVAPTAN [Suspect]
     Active Substance: TOLVAPTAN
     Indication: Product used for unknown indication
     Dosage: 0.5 DF, QOD (15 MG HALF TABLET EVERY OTHER DAY)
     Route: 048
  2. TOLVAPTAN [Suspect]
     Active Substance: TOLVAPTAN
     Dosage: 1 DF, DAILY (15 MG 1 TABLET A DAY FOR 5 DAYS)
     Route: 048
     Dates: start: 202503

REACTIONS (9)
  - Dialysis [Unknown]
  - Pneumonia [Unknown]
  - Herpes zoster [Unknown]
  - Urinary tract infection [Unknown]
  - Blood creatinine increased [Recovering/Resolving]
  - Wrong technique in product usage process [Unknown]
  - Underdose [Unknown]
  - Inappropriate schedule of product administration [Unknown]
  - Therapy cessation [Unknown]

NARRATIVE: CASE EVENT DATE: 20250101
